FAERS Safety Report 5789373-5 (Version None)
Quarter: 2008Q2

REPORT INFORMATION
  Report Type: 
  Country: None (occurrence: None)
  Receive Date: 20080623
  Receipt Date: 20080616
  Transmission Date: 20081010
  Serious: Yes (Hospitalization, Other)
  Sender: FDA-Public Use
  Company Number: 2008SP011788

PATIENT
  Age: 16 Year
  Sex: Female

DRUGS (1)
  1. ASMANEX TWISTHALER [Suspect]
     Indication: ASTHMA
     Dosage: 200 MCG; QD; PO
     Route: 048
     Dates: start: 20080415, end: 20080415

REACTIONS (1)
  - ANGIOEDEMA [None]
